FAERS Safety Report 14883811 (Version 3)
Quarter: 2018Q2

REPORT INFORMATION
  Report Type: Spontaneous
  Country: US (occurrence: US)
  Receive Date: 20180511
  Receipt Date: 20180530
  Transmission Date: 20180711
  Serious: No
  Sender: FDA-Public Use
  Company Number: US-LEXICON PHARMACEUTICALS, INC-18-1606-00480

PATIENT
  Age: 68 Year
  Sex: Female
  Weight: 58.57 kg

DRUGS (30)
  1. TELOTRISTAT ETHYL [Suspect]
     Active Substance: TELOTRISTAT ETHYL
     Indication: NEUROENDOCRINE TUMOUR OF THE LUNG
     Route: 048
     Dates: start: 201703, end: 201703
  2. SIMVASTATIN. [Concomitant]
     Active Substance: SIMVASTATIN
  3. ONDANSETRON [Concomitant]
     Active Substance: ONDANSETRON
  4. PROCHLORPERAZINE. [Concomitant]
     Active Substance: PROCHLORPERAZINE
  5. ZOLOFT [Concomitant]
     Active Substance: SERTRALINE HYDROCHLORIDE
  6. CINNAMON. [Concomitant]
     Active Substance: CINNAMON
  7. SANDOSTATIN [Concomitant]
     Active Substance: OCTREOTIDE ACETATE
  8. LOPERAMIDE [Concomitant]
     Active Substance: LOPERAMIDE
  9. TELOTRISTAT ETHYL [Suspect]
     Active Substance: TELOTRISTAT ETHYL
     Route: 048
     Dates: start: 201804, end: 2018
  10. VITAMIN B12 [Concomitant]
     Active Substance: CYANOCOBALAMIN
  11. CURCUMIN [Concomitant]
     Active Substance: CURCUMIN
  12. TELOTRISTAT ETHYL [Suspect]
     Active Substance: TELOTRISTAT ETHYL
     Route: 048
  13. XELODA [Concomitant]
     Active Substance: CAPECITABINE
  14. COENZYME Q10 [Concomitant]
     Active Substance: UBIDECARENONE
  15. OMEGA 3 [Concomitant]
     Active Substance: OMEGA-3 FATTY ACIDS
  16. PROBIOTIC [Concomitant]
     Active Substance: PROBIOTICS NOS
  17. TELOTRISTAT ETHYL [Suspect]
     Active Substance: TELOTRISTAT ETHYL
     Route: 048
     Dates: start: 2018
  18. VAGIFEM [Concomitant]
     Active Substance: ESTRADIOL
  19. PREVALITE [Concomitant]
     Active Substance: CHOLESTYRAMINE
  20. DIPHEN/ATROP [Concomitant]
     Active Substance: ATROPINE SULFATE\DIPHENOXYLATE
  21. FLUTICASONE PROPIONATE. [Concomitant]
     Active Substance: FLUTICASONE PROPIONATE
  22. MULTIVITAMIN ADULT [Concomitant]
  23. VITAMIN C [Concomitant]
     Active Substance: ASCORBIC ACID
  24. TYLENOL [Concomitant]
     Active Substance: ACETAMINOPHEN
  25. CAL-CITRATE PLUS VITAMIN D [Concomitant]
  26. CRANBERRY. [Concomitant]
     Active Substance: CRANBERRY
  27. VITAMIN D [Concomitant]
     Active Substance: CHOLECALCIFEROL
  28. TELOTRISTAT ETHYL [Suspect]
     Active Substance: TELOTRISTAT ETHYL
     Route: 048
     Dates: start: 201703, end: 201804
  29. ZOLPIDEM [Concomitant]
     Active Substance: ZOLPIDEM\ZOLPIDEM TARTRATE
  30. TEMODAR [Concomitant]
     Active Substance: TEMOZOLOMIDE

REACTIONS (2)
  - Constipation [Not Recovered/Not Resolved]
  - Diarrhoea [Unknown]

NARRATIVE: CASE EVENT DATE: 201703
